FAERS Safety Report 19984165 (Version 2)
Quarter: 2021Q4

REPORT INFORMATION
  Report Type: Spontaneous
  Country: JP (occurrence: JP)
  Receive Date: 20211022
  Receipt Date: 20211118
  Transmission Date: 20220303
  Serious: Yes (Hospitalization, Other)
  Sender: FDA-Public Use
  Company Number: JP-UCBJ-CD202109476UCBPHAPROD

PATIENT
  Age: 64 Year
  Sex: Female
  Weight: 49.6 kg

DRUGS (2)
  1. LEVETIRACETAM [Suspect]
     Active Substance: LEVETIRACETAM
     Indication: Epilepsy
     Dosage: 500 MG TABLET, 0.5 TABLETS IN THE MORNING AND 1 TABLET IN EVENING
     Route: 048
     Dates: end: 20210918
  2. ALFACALCIDOL [Concomitant]
     Active Substance: ALFACALCIDOL
     Indication: Product used for unknown indication

REACTIONS (6)
  - Seizure [Unknown]
  - Pneumonia aspiration [Unknown]
  - Joint dislocation [Unknown]
  - Vomiting [Unknown]
  - Underdose [Unknown]
  - Off label use [Unknown]

NARRATIVE: CASE EVENT DATE: 20210901
